FAERS Safety Report 17611097 (Version 1)
Quarter: 2020Q2

REPORT INFORMATION
  Report Type: Spontaneous
  Country: FR (occurrence: FR)
  Receive Date: 20200401
  Receipt Date: 20200401
  Transmission Date: 20200713
  Serious: Yes (Other)
  Sender: FDA-Public Use
  Company Number: FR-PFIZER INC-2020127008

PATIENT
  Age: 61 Year
  Sex: Male
  Weight: 57 kg

DRUGS (12)
  1. FILGRASTIM [Suspect]
     Active Substance: FILGRASTIM
     Indication: PROPHYLAXIS
     Dosage: 30 MILLION IU, 1X/DAY
     Route: 058
     Dates: start: 20191206, end: 20191209
  2. DEXAMETHASONE. [Suspect]
     Active Substance: DEXAMETHASONE
     Indication: ACUTE MYELOID LEUKAEMIA
     Dosage: 20 MG, 1X/DAY
     Route: 048
     Dates: start: 20191129, end: 20191201
  3. AMIKACIN. [Suspect]
     Active Substance: AMIKACIN
     Indication: INFECTION
     Dosage: 750 MG, DAILY
     Route: 042
     Dates: start: 20191207, end: 20191211
  4. CYTARABINE. [Suspect]
     Active Substance: CYTARABINE
     Indication: ACUTE MYELOID LEUKAEMIA
     Dosage: 170 MG, 1X/DAY
     Route: 042
     Dates: start: 20191128, end: 20191205
  5. IDARUBICINE MYLAN [Suspect]
     Active Substance: IDARUBICIN
     Indication: ACUTE MYELOID LEUKAEMIA
     Dosage: 13.6 MG, 1X/DAY
     Route: 042
     Dates: start: 20191129, end: 20191203
  6. ACIDE FUSIDIQUE [Suspect]
     Active Substance: FUSIDIC ACID
     Indication: FOLLICULITIS
     Dosage: 2 DF, 1X/DAY
     Route: 003
     Dates: start: 20191206, end: 20191208
  7. VALACICLOVIR [Suspect]
     Active Substance: VALACYCLOVIR HYDROCHLORIDE
     Indication: INFECTION
     Dosage: 1000 MG, 1X/DAY
     Route: 048
     Dates: start: 20191130, end: 20191209
  8. ZOPHREN [ONDANSETRON HYDROCHLORIDE] [Suspect]
     Active Substance: ONDANSETRON
     Indication: PROPHYLAXIS OF NAUSEA AND VOMITING
     Dosage: 8 MG, DAILY
     Route: 042
     Dates: start: 20191129, end: 20191208
  9. METHYLPREDNISOLONE SODIUM SUCCINATE. [Suspect]
     Active Substance: METHYLPREDNISOLONE SODIUM SUCCINATE
     Dosage: 40 MG, 1X/DAY
     Route: 037
     Dates: start: 20191128, end: 20191128
  10. CEFTRIAXONE. [Suspect]
     Active Substance: CEFTRIAXONE
     Indication: FEBRILE NEUTROPENIA
     Dosage: 2 G, UNK
     Route: 042
     Dates: start: 20191206, end: 20191209
  11. METHOTREXATE SODIUM. [Suspect]
     Active Substance: METHOTREXATE SODIUM
     Indication: ACUTE MYELOID LEUKAEMIA
     Dosage: 15 MG, SINGLE
     Route: 042
     Dates: start: 20191128, end: 20191128
  12. BELUSTINE [Suspect]
     Active Substance: LOMUSTINE
     Indication: ACUTE MYELOID LEUKAEMIA
     Dosage: 320 MG, SINGLE
     Route: 048
     Dates: start: 20191129, end: 20191129

REACTIONS (3)
  - Toxic skin eruption [Recovered/Resolved]
  - Off label use [Unknown]
  - Product use issue [Unknown]

NARRATIVE: CASE EVENT DATE: 20191207
